FAERS Safety Report 8029845-6 (Version None)
Quarter: 2012Q1

REPORT INFORMATION
  Report Type: 
  Country: None (occurrence: None)
  Receive Date: 20120109
  Receipt Date: 20120104
  Transmission Date: 20120608
  Serious: Yes (Other)
  Sender: FDA-Public Use
  Company Number: US-PFIZER INC-2012002995

PATIENT
  Sex: Female

DRUGS (1)
  1. AROMASIN [Suspect]
     Dosage: UNK
     Dates: start: 20090101

REACTIONS (4)
  - DIZZINESS [None]
  - DENTAL CARIES [None]
  - JAW DISORDER [None]
  - BONE DISORDER [None]
